FAERS Safety Report 5132793-2 (Version None)
Quarter: 2006Q4

REPORT INFORMATION
  Report Type: 
  Country: None (occurrence: None)
  Receive Date: 20061019
  Receipt Date: 20061019
  Transmission Date: 20070319
  Serious: No
  Sender: FDA-Public Use
  Company Number: None

PATIENT
  Sex: Female

DRUGS (1)
  1. TRANXENE [Suspect]
     Indication: EPILEPSY
     Dosage: 3.75 MG   2 TABS BID  PO
     Route: 048
     Dates: start: 20060630, end: 20060831

REACTIONS (5)
  - ANOREXIA [None]
  - ANXIETY [None]
  - INSOMNIA [None]
  - PRURITUS [None]
  - THERAPEUTIC RESPONSE UNEXPECTED WITH DRUG SUBSTITUTION [None]
